FAERS Safety Report 10542271 (Version 1)
Quarter: 2014Q4

REPORT INFORMATION
  Report Type: Spontaneous
  Country: US (occurrence: US)
  Receive Date: 20141024
  Receipt Date: 20141024
  Transmission Date: 20150529
  Serious: Yes (Hospitalization, Other)
  Sender: FDA-Public Use
  Company Number: US-ABBVIE-14P-163-1297785-00

PATIENT
  Sex: Male

DRUGS (1)
  1. ANDROGEL [Suspect]
     Active Substance: TESTOSTERONE
     Indication: PRODUCT USED FOR UNKNOWN INDICATION
     Route: 065
     Dates: start: 201206, end: 201211

REACTIONS (6)
  - Emotional distress [Unknown]
  - Economic problem [Unknown]
  - Physical disability [Unknown]
  - Emotional disorder [Unknown]
  - Pulmonary embolism [Unknown]
  - Injury [Unknown]

NARRATIVE: CASE EVENT DATE: 201211
